FAERS Safety Report 4319098-4 (Version None)
Quarter: 2004Q1

REPORT INFORMATION
  Report Type: 
  Country: None (occurrence: None)
  Receive Date: 20040316
  Receipt Date: 20040302
  Transmission Date: 20041129
  Serious: Yes (Life-Threatening, Hospitalization)
  Sender: FDA-Public Use
  Company Number: A01200400266

PATIENT
  Age: 64 Year
  Sex: Male

DRUGS (6)
  1. ELOXATIN - (OXALIPLATIN) - POWDER - 100 MG [Suspect]
     Indication: COLON CANCER METASTATIC
     Dosage: 200 MG Q3W
     Route: 042
     Dates: start: 20031219, end: 20031219
  2. ELOXATIN - (OXALIPLATIN) - POWDER - 100 MG [Suspect]
     Indication: METASTASES TO LIVER
     Dosage: 200 MG Q3W
     Route: 042
     Dates: start: 20031219, end: 20031219
  3. XELODA [Suspect]
     Indication: COLON CANCER
     Dosage: 2000 MG BID
     Route: 048
     Dates: start: 20031201
  4. METFORMIN HCL (METFORMIN HYDROCHLORIDE) [Concomitant]
  5. LORAZEPAM [Concomitant]
  6. MIXTARD HUMAN 70/30 [Concomitant]

REACTIONS (2)
  - DUODENAL ULCER HAEMORRHAGE [None]
  - GASTROINTESTINAL MUCOSAL NECROSIS [None]
